FAERS Safety Report 13271332 (Version 4)
Quarter: 2017Q2

REPORT INFORMATION
  Report Type: Report from Study
  Country: GB (occurrence: GB)
  Receive Date: 20170226
  Receipt Date: 20170508
  Transmission Date: 20170830
  Serious: Yes (Death, Other)
  Sender: FDA-Public Use
  Company Number: GB-BRISTOL-MYERS SQUIBB COMPANY-BMS-2017-001323

PATIENT
  Sex: Female

DRUGS (2)
  1. NIVOLUMAB [Suspect]
     Active Substance: NIVOLUMAB
     Indication: METASTATIC MALIGNANT MELANOMA
     Dosage: 3 MG/KG, UNK
     Route: 042
     Dates: start: 20161222
  2. NIVOLUMAB [Suspect]
     Active Substance: NIVOLUMAB
     Indication: PRODUCT USED FOR UNKNOWN INDICATION
     Dosage: 3 MG/KG, UNK
     Route: 042
     Dates: start: 20170203

REACTIONS (15)
  - Vertebral column mass [Unknown]
  - Lower respiratory tract infection [Recovering/Resolving]
  - Nausea [Not Recovered/Not Resolved]
  - Metastases to lung [Unknown]
  - Productive cough [Recovering/Resolving]
  - Fatigue [Unknown]
  - Nerve compression [Unknown]
  - Pain [Unknown]
  - Malignant neoplasm progression [Fatal]
  - Metastases to liver [Unknown]
  - Gait disturbance [Unknown]
  - Oral pain [Unknown]
  - Mouth ulceration [Recovering/Resolving]
  - Pruritus [Not Recovered/Not Resolved]
  - Mucosal inflammation [Unknown]
